FAERS Safety Report 6815748-9 (Version None)
Quarter: 2010Q3

REPORT INFORMATION
  Report Type: 
  Country: None (occurrence: None)
  Receive Date: 20100702
  Receipt Date: 20100626
  Transmission Date: 20110219
  Serious: Yes (Other)
  Sender: FDA-Public Use
  Company Number: US-AMGEN-QUU420750

PATIENT
  Sex: Female

DRUGS (1)
  1. ENBREL [Suspect]
     Indication: RHEUMATOID ARTHRITIS
     Route: 058
     Dates: start: 20040610, end: 20100502

REACTIONS (4)
  - BLINDNESS UNILATERAL [None]
  - ERYTHEMA [None]
  - FEELING HOT [None]
  - PRECANCEROUS SKIN LESION [None]
